FAERS Safety Report 8606497-5 (Version None)
Quarter: 2012Q3

REPORT INFORMATION
  Report Type: 
  Country: None (occurrence: None)
  Receive Date: 20120820
  Receipt Date: 20120815
  Transmission Date: 20120928
  Serious: Yes (Other)
  Sender: FDA-Public Use
  Company Number: PHHY2011GB81556

PATIENT
  Age: 44 Year
  Sex: Female

DRUGS (1)
  1. PYRIDOSTIGMINE BROMIDE [Suspect]
     Indication: MYASTHENIC SYNDROME
     Dosage: 60 MG, TID

REACTIONS (2)
  - FATIGUE [None]
  - DRUG INEFFECTIVE [None]
